FAERS Safety Report 7718608-4 (Version None)
Quarter: 2011Q3

REPORT INFORMATION
  Report Type: 
  Country: None (occurrence: None)
  Receive Date: 20110824
  Receipt Date: 20110811
  Transmission Date: 20111222
  Serious: Yes (Other)
  Sender: FDA-Public Use
  Company Number: 2011SP033930

PATIENT
  Age: 34 Year
  Sex: Male
  Weight: 84 kg

DRUGS (6)
  1. DIAZEPAM [Concomitant]
  2. DEXAMETHASONE [Suspect]
     Indication: PRODUCT USED FOR UNKNOWN INDICATION
     Dosage: 1 DF;IV
     Route: 042
     Dates: start: 20110512, end: 20110517
  3. VOLTAREN [Suspect]
     Indication: BACK PAIN
     Dosage: 50 MG;TID;PO
     Route: 048
     Dates: start: 20110517, end: 20110520
  4. DEXAMETHASONE [Suspect]
     Indication: PRODUCT USED FOR UNKNOWN INDICATION
     Dosage: 1 DF;IV
     Route: 042
     Dates: start: 20110512, end: 20110517
  5. KETOPROFEN [Suspect]
     Indication: BACK PAIN
     Dosage: 50 MG;BID;PO, 100 MG;QD;IV
     Route: 042
     Dates: start: 20110512, end: 20110516
  6. KETOPROFEN [Suspect]
     Indication: BACK PAIN
     Dosage: 50 MG;BID;PO, 100 MG;QD;IV
     Route: 042
     Dates: start: 20110512, end: 20110517

REACTIONS (3)
  - ALLERGIC COLITIS [None]
  - GASTROINTESTINAL INFLAMMATION [None]
  - DRUG INTERACTION [None]
